FAERS Safety Report 16931983 (Version 1)
Quarter: 2019Q4

REPORT INFORMATION
  Report Type: Report from Study
  Country: CN (occurrence: CN)
  Receive Date: 20191017
  Receipt Date: 20191017
  Transmission Date: 20200122
  Serious: Yes (Hospitalization)
  Sender: FDA-Public Use
  Company Number: PHHO2016CN010542

PATIENT
  Age: 72 Year
  Sex: Male
  Weight: 62 kg

DRUGS (5)
  1. SACUBITRIL,VALSARTAN [Suspect]
     Active Substance: SACUBITRIL\VALSARTAN
     Indication: CARDIAC FAILURE CHRONIC
     Dosage: 200 MG, BID
     Route: 048
     Dates: start: 20160519, end: 20160717
  2. METOPROLOL. [Concomitant]
     Active Substance: METOPROLOL
     Indication: CORONARY ARTERY DISEASE
     Dosage: UNK
     Route: 065
     Dates: start: 20160729
  3. BENZBROMARONE [Concomitant]
     Active Substance: BENZBROMARONE
     Indication: HYPERURICAEMIA
     Dosage: UNK
     Route: 065
     Dates: start: 20160729
  4. PLACEBO [Suspect]
     Active Substance: UNSPECIFIED INGREDIENT
     Dosage: UNK
     Route: 048
     Dates: start: 20160519, end: 20160717
  5. CLOPIDOGREL [Concomitant]
     Active Substance: CLOPIDOGREL BISULFATE
     Indication: CORONARY ARTERY DISEASE
     Dosage: UNK
     Route: 065
     Dates: start: 20160729

REACTIONS (2)
  - Cerebral infarction [Recovered/Resolved with Sequelae]
  - Cerebral infarction [Recovered/Resolved with Sequelae]

NARRATIVE: CASE EVENT DATE: 20160718
